FAERS Safety Report 7273292-1 (Version None)
Quarter: 2011Q1

REPORT INFORMATION
  Report Type: 
  Country: None (occurrence: None)
  Receive Date: 20110203
  Receipt Date: 20101210
  Transmission Date: 20110831
  Serious: No
  Sender: FDA-Public Use
  Company Number: US-ABBOTT-10P-163-0691604-00

PATIENT
  Age: 76 Year
  Sex: Female
  Weight: 57.204 kg

DRUGS (7)
  1. SYNTHROID [Suspect]
     Dosage: 1ST THING IN MORNING BEFORE EATING
     Route: 048
     Dates: end: 20101013
  2. LOPRESSOR [Concomitant]
     Indication: HYPERTENSION
     Route: 048
  3. ASPIRIN [Concomitant]
     Indication: PRODUCT USED FOR UNKNOWN INDICATION
     Route: 048
  4. SYNTHROID [Suspect]
     Dosage: 1ST THING IN MORNING BEFORE EATING
     Route: 048
  5. SYNTHROID [Suspect]
     Indication: HYPOTHYROIDISM
     Dosage: 1ST THING IN MORNING BEFORE EATING
     Dates: start: 20101013
  6. MULTI-VITAMIN [Concomitant]
     Indication: PRODUCT USED FOR UNKNOWN INDICATION
  7. SYNTHROID [Suspect]
     Indication: HYPOTHYROIDISM
     Dosage: 1ST THING IN MORNING BEFORE EATING
     Route: 048

REACTIONS (2)
  - HEART RATE IRREGULAR [None]
  - ALOPECIA [None]
